FAERS Safety Report 7983964 (Version 4)
Quarter: 2013Q1

REPORT INFORMATION
  Report Type: Report from Study
  Country: IT (occurrence: IT)
  Receive Date: 20110609
  Receipt Date: 20130117
  Transmission Date: 20140127
  Serious: Yes (Other)
  Sender: FDA-Public Use
  Company Number: PHHO2011IT09746

PATIENT
  Age: 66 Year
  Sex: Female
  Weight: 80 kg

DRUGS (7)
  1. AMN107 [Suspect]
     Indication: CHRONIC MYELOID LEUKAEMIA
     Dosage: 300 MG, BID
     Route: 048
     Dates: start: 20101025
  2. EUTIROX [Concomitant]
     Indication: HYPOTHYROIDISM
     Dosage: 125 L/G
     Dates: start: 20101012
  3. APROVEL [Concomitant]
     Indication: HYPERTENSION
     Dosage: 150 MG, UNK
     Dates: start: 20101012
  4. ATENOLOL [Concomitant]
     Indication: HYPERTENSION
     Dosage: 75 MG, UNK
     Dates: start: 20101012, end: 20110605
  5. ATENOLOL [Concomitant]
     Dosage: UNK
     Dates: start: 20110607
  6. DEURSIL [Concomitant]
     Indication: PROPHYLAXIS
     Dosage: 450 MG, UNK
     Dates: start: 20101012
  7. CLEXANE [Concomitant]
     Indication: VENOUS INSUFFICIENCY
     Dosage: 4000 U, UNK
     Dates: start: 20110515

REACTIONS (1)
  - Cardiac fibrillation [Recovered/Resolved]
